FAERS Safety Report 12159483 (Version 3)
Quarter: 2016Q2

REPORT INFORMATION
  Report Type: Spontaneous
  Country: US (occurrence: US)
  Receive Date: 20160308
  Receipt Date: 20160411
  Transmission Date: 20160815
  Serious: Yes (Hospitalization, Other)
  Sender: FDA-Public Use
  Company Number: US-GLAXOSMITHKLINE-US2016032381

PATIENT
  Age: 45 Year
  Sex: Female

DRUGS (3)
  1. SYNTHROID [Concomitant]
     Active Substance: LEVOTHYROXINE SODIUM
  2. LAMICTAL XR [Suspect]
     Active Substance: LAMOTRIGINE
     Dosage: 300 MG, QD
  3. LAMICTAL XR [Suspect]
     Active Substance: LAMOTRIGINE
     Indication: SEIZURE
     Dosage: 200 MG, QD
     Route: 048
     Dates: start: 20130101

REACTIONS (15)
  - Loss of consciousness [Unknown]
  - Amnesia [Unknown]
  - Central nervous system lesion [Unknown]
  - Drug ineffective [Unknown]
  - Disorientation [Unknown]
  - Drug dispensing error [Unknown]
  - Seizure [Recovered/Resolved]
  - Somnolence [Unknown]
  - Neurological examination abnormal [Unknown]
  - Aura [Unknown]
  - Blindness transient [Unknown]
  - Neurological infection [Unknown]
  - Headache [Unknown]
  - Blood electrolytes abnormal [Unknown]
  - Adverse drug reaction [Unknown]

NARRATIVE: CASE EVENT DATE: 201506
